FAERS Safety Report 21999427 (Version 1)
Quarter: 2023Q1

REPORT INFORMATION
  Report Type: Spontaneous
  Country: AU (occurrence: AU)
  Receive Date: 20230216
  Receipt Date: 20230216
  Transmission Date: 20230418
  Serious: Yes (Other)
  Sender: FDA-Public Use
  Company Number: AU-MYLANLABS-2023M1016816

PATIENT
  Age: 22 Year
  Sex: Female

DRUGS (10)
  1. DOXORUBICIN [Suspect]
     Active Substance: DOXORUBICIN
     Indication: Spindle cell sarcoma
     Dosage: UNK, CYCLE
     Route: 065
  2. DOXORUBICIN [Suspect]
     Active Substance: DOXORUBICIN
     Indication: Pancreatic disorder
  3. DOXYCYCLINE [Suspect]
     Active Substance: DOXYCYCLINE
     Indication: Spindle cell sarcoma
     Dosage: UNK
     Route: 065
  4. DOXYCYCLINE [Suspect]
     Active Substance: DOXYCYCLINE
     Indication: Pancreatic disorder
  5. IFOSFAMIDE [Suspect]
     Active Substance: IFOSFAMIDE
     Indication: Spindle cell sarcoma
     Dosage: UNK, CYCLE
     Route: 065
  6. IFOSFAMIDE [Suspect]
     Active Substance: IFOSFAMIDE
     Indication: Pancreatic disorder
  7. COBIMETINIB [Suspect]
     Active Substance: COBIMETINIB
     Indication: Spindle cell sarcoma
     Dosage: 60 MILLIGRAM, QD
     Route: 048
  8. COBIMETINIB [Suspect]
     Active Substance: COBIMETINIB
     Indication: Pancreatic disorder
  9. PAZOPANIB [Suspect]
     Active Substance: PAZOPANIB
     Indication: Spindle cell sarcoma
     Dosage: UNK
     Route: 065
  10. PAZOPANIB [Suspect]
     Active Substance: PAZOPANIB
     Indication: Pancreatic disorder

REACTIONS (3)
  - Drug ineffective [Unknown]
  - Dermatitis acneiform [Unknown]
  - Photosensitivity reaction [Unknown]
